FAERS Safety Report 6843590-1 (Version None)
Quarter: 2010Q3

REPORT INFORMATION
  Report Type: 
  Country: None (occurrence: None)
  Receive Date: 20100712
  Receipt Date: 20100628
  Transmission Date: 20110219
  Serious: Yes (Hospitalization)
  Sender: FDA-Public Use
  Company Number: 7009035

PATIENT
  Age: 12 Year
  Sex: Male

DRUGS (2)
  1. SAIZEN [Suspect]
     Dates: start: 20100621, end: 20100601
  2. SAIZEN [Suspect]
     Dates: start: 20100601

REACTIONS (1)
  - SHUNT MALFUNCTION [None]
